FAERS Safety Report 4710955-3 (Version None)
Quarter: 2005Q3

REPORT INFORMATION
  Report Type: 
  Country: None (occurrence: None)
  Receive Date: 20050706
  Receipt Date: 20050706
  Transmission Date: 20060218
  Serious: No
  Sender: FDA-Public Use
  Company Number: None

PATIENT
  Sex: Male

DRUGS (1)
  1. LIPITOR [Suspect]

REACTIONS (6)
  - BALANCE DISORDER [None]
  - BURNING SENSATION [None]
  - FALL [None]
  - MYALGIA [None]
  - NEUROPATHY PERIPHERAL [None]
  - WALKING AID USER [None]
